FAERS Safety Report 16101519 (Version 2)
Quarter: 2019Q2

REPORT INFORMATION
  Report Type: Report from Study
  Country: US (occurrence: US)
  Receive Date: 20190321
  Receipt Date: 20190409
  Transmission Date: 20190711
  Serious: No
  Sender: FDA-Public Use
  Company Number: PHEH2019US012117

PATIENT
  Sex: Male

DRUGS (2)
  1. ENTRESTO [Suspect]
     Active Substance: SACUBITRIL\VALSARTAN
     Dosage: 1.5 DF (CUTTING HIS PILLS IN HALF IN THE MORNING), UNK
     Route: 065
  2. ENTRESTO [Suspect]
     Active Substance: SACUBITRIL\VALSARTAN
     Indication: PRODUCT USED FOR UNKNOWN INDICATION
     Route: 048

REACTIONS (14)
  - Dyspnoea [Unknown]
  - Hypertension [Unknown]
  - Hyperventilation [Unknown]
  - Cognitive disorder [Unknown]
  - Depression [Unknown]
  - Blood pressure abnormal [Unknown]
  - Depressed mood [Unknown]
  - Wrong technique in product usage process [Unknown]
  - Blood glucose fluctuation [Unknown]
  - Drug ineffective [Unknown]
  - Vein disorder [Unknown]
  - Muscle tightness [Unknown]
  - Pain [Unknown]
  - Dizziness [Unknown]
